FAERS Safety Report 10403668 (Version 1)
Quarter: 2014Q3

REPORT INFORMATION
  Report Type: Spontaneous
  Country: US (occurrence: US)
  Receive Date: 20140822
  Receipt Date: 20140822
  Transmission Date: 20150326
  Serious: No
  Sender: FDA-Public Use
  Company Number: US-TARO-2014TAR00112

PATIENT
  Sex: Female
  Weight: 99.77 kg

DRUGS (2)
  1. CLOBETASOL PROPIONATE CREAM USP 0.05% [Suspect]
     Active Substance: CLOBETASOL PROPIONATE
     Indication: RASH
  2. CLOBETASOL PROPIONATE CREAM USP 0.05% [Suspect]
     Active Substance: CLOBETASOL PROPIONATE
     Indication: HYPERSENSITIVITY
     Dosage: UNK UNK, 3X/DAY
     Route: 061
     Dates: start: 201406

REACTIONS (1)
  - Blood glucose increased [Recovered/Resolved]
